FAERS Safety Report 20155680 (Version 1)
Quarter: 2021Q4

REPORT INFORMATION
  Report Type: Spontaneous
  Country: US (occurrence: US)
  Receive Date: 20211207
  Receipt Date: 20211207
  Transmission Date: 20220303
  Serious: Yes (Hospitalization)
  Sender: FDA-Public Use
  Company Number: US-LUPIN PHARMACEUTICALS INC.-2021-23814

PATIENT
  Age: 47 Year
  Sex: Male

DRUGS (3)
  1. VANCOMYCIN [Suspect]
     Active Substance: VANCOMYCIN
     Indication: Evidence based treatment
     Dosage: 1 GRAM, BID
     Route: 042
  2. VANCOMYCIN [Suspect]
     Active Substance: VANCOMYCIN
     Dosage: 1 GRAM, QD (FOLLOWING LOADING DOSE)
     Route: 042
  3. VANCOMYCIN [Suspect]
     Active Substance: VANCOMYCIN
     Dosage: 1 GRAM, BID
     Route: 042

REACTIONS (1)
  - Nephropathy toxic [Recovered/Resolved]
